FAERS Safety Report 7966930-9 (Version None)
Quarter: 2011Q4

REPORT INFORMATION
  Report Type: 
  Country: None (occurrence: None)
  Receive Date: 20111209
  Receipt Date: 20111206
  Transmission Date: 20120403
  Serious: Yes (Hospitalization, Other)
  Sender: FDA-Public Use
  Company Number: CA-PFIZER INC-2011189640

PATIENT
  Sex: Male

DRUGS (3)
  1. EFFEXOR [Suspect]
     Indication: PAIN
     Dosage: 37.5 MG, 3X/DAY
     Route: 048
     Dates: start: 20070101, end: 20110301
  2. EFFEXOR [Suspect]
     Indication: ANXIETY
  3. VIAGRA [Concomitant]

REACTIONS (34)
  - ATRIAL FIBRILLATION [None]
  - WEIGHT DECREASED [None]
  - NIGHTMARE [None]
  - PLANTAR ERYTHEMA [None]
  - BLISTER [None]
  - WITHDRAWAL SYNDROME [None]
  - VERTIGO [None]
  - CONSTIPATION [None]
  - SWELLING [None]
  - PANIC ATTACK [None]
  - PARAESTHESIA [None]
  - CRYING [None]
  - FOOD INTOLERANCE [None]
  - HYPOTONIA [None]
  - ANXIETY [None]
  - VOMITING [None]
  - ABDOMINAL PAIN UPPER [None]
  - FEAR [None]
  - FEELING HOT [None]
  - ABDOMINAL PAIN [None]
  - BLOOD GLUCOSE INCREASED [None]
  - TREMOR [None]
  - DRY SKIN [None]
  - HYPOAESTHESIA [None]
  - PALPITATIONS [None]
  - DYSPNOEA [None]
  - JOINT LOCK [None]
  - DIZZINESS [None]
  - CHILLS [None]
  - VITAMIN B12 DECREASED [None]
  - HEADACHE [None]
  - ARTHRALGIA [None]
  - ABDOMINAL DISTENSION [None]
  - NAUSEA [None]
